FAERS Safety Report 6963155-0 (Version None)
Quarter: 2010Q3

REPORT INFORMATION
  Report Type: 
  Country: None (occurrence: None)
  Receive Date: 20100902
  Receipt Date: 20100824
  Transmission Date: 20110219
  Serious: Yes (Hospitalization)
  Sender: FDA-Public Use
  Company Number: GXKR2010SI09563

PATIENT
  Age: 82 Year
  Sex: Female

DRUGS (3)
  1. DICLOFENAC (NGX) [Suspect]
     Indication: BACK PAIN
     Dosage: 50 MG, BID
     Route: 065
  2. ENALAPRIL MALEATE [Interacting]
     Indication: HYPERTENSION
     Dosage: 20 MG, BID
     Route: 065
  3. METFORMIN [Concomitant]
     Indication: DIABETES MELLITUS
     Dosage: 50 MG, BID

REACTIONS (6)
  - CIRCULATORY COLLAPSE [None]
  - DIARRHOEA [None]
  - DRUG INTERACTION [None]
  - HYPERKALAEMIA [None]
  - MUSCULAR WEAKNESS [None]
  - VOMITING [None]
